FAERS Safety Report 15575433 (Version 1)
Quarter: 2018Q4

REPORT INFORMATION
  Report Type: Spontaneous
  Country: US (occurrence: US)
  Receive Date: 20181029
  Receipt Date: 20181029
  Transmission Date: 20190205
  Serious: No
  Sender: FDA-Public Use
  Company Number: None

PATIENT
  Age: 78 Year
  Sex: Female
  Weight: 79.38 kg

DRUGS (1)
  1. STELARA [Suspect]
     Active Substance: USTEKINUMAB
     Indication: RHEUMATOID ARTHRITIS
     Dosage: INJECT 45MG  SUBCUTANEOUSLY AT  4 WEEK 0 AND WEEK 4  AS DIRECTED
     Route: 058

REACTIONS (3)
  - Hyperhidrosis [None]
  - Abdominal pain upper [None]
  - Diarrhoea [None]
